FAERS Safety Report 11590103 (Version 1)
Quarter: 2015Q4

REPORT INFORMATION
  Report Type: Not Available
  Country: NO (occurrence: NO)
  Receive Date: 20151002
  Receipt Date: 20151002
  Transmission Date: 20160304
  Serious: Yes (Death)
  Sender: FDA-Public Use
  Company Number: NO-MUNDIPHARMA DS AND PHARMACOVIGILANCE-GBR-2015-0031195

PATIENT
  Age: 39 Year
  Sex: Female

DRUGS (1)
  1. MORPHINE SULFATE. [Suspect]
     Active Substance: MORPHINE SULFATE
     Indication: ANALGESIC THERAPY
     Route: 065

REACTIONS (3)
  - Toxicity to various agents [Fatal]
  - Homicide [Fatal]
  - Overdose [Fatal]
